FAERS Safety Report 25154990 (Version 1)
Quarter: 2025Q2

REPORT INFORMATION
  Report Type: Spontaneous
  Country: US (occurrence: US)
  Receive Date: 20250403
  Receipt Date: 20250403
  Transmission Date: 20250717
  Serious: Yes (Other)
  Sender: MYLAN
  Company Number: US-MYLANLABS-2025M1028666

PATIENT
  Age: 16 Year
  Sex: Female

DRUGS (3)
  1. GABAPENTIN [Suspect]
     Active Substance: GABAPENTIN
     Indication: Paraesthesia
  2. HYDROCODONE [Suspect]
     Active Substance: HYDROCODONE
     Indication: Pain
  3. ATIVAN [Suspect]
     Active Substance: LORAZEPAM
     Indication: Muscle spasms

REACTIONS (2)
  - Drug ineffective for unapproved indication [Unknown]
  - Off label use [Unknown]
